FAERS Safety Report 8604283-3 (Version None)
Quarter: 2012Q3

REPORT INFORMATION
  Report Type: 
  Country: None (occurrence: None)
  Receive Date: 20120820
  Receipt Date: 20120810
  Transmission Date: 20120928
  Serious: Yes (Other)
  Sender: FDA-Public Use
  Company Number: AU-JNJFOC-20120805744

PATIENT
  Age: 79 Year
  Sex: Female

DRUGS (6)
  1. CEFTRIAXONE [Concomitant]
     Route: 065
  2. ATENOLOL [Concomitant]
     Indication: ESSENTIAL HYPERTENSION
     Route: 065
  3. CEFTRIAXONE [Concomitant]
     Indication: URINARY TRACT DISORDER
     Route: 065
  4. TRIMETHOPRIM [Concomitant]
     Indication: URINARY TRACT DISORDER
     Route: 065
  5. GALANTAMINE HYDROBROMIDE [Suspect]
     Indication: PRODUCT USED FOR UNKNOWN INDICATION
     Dosage: CEASED AFTER 3 DOSES
     Route: 048
     Dates: start: 20110122
  6. WARFARIN SODIUM [Concomitant]
     Indication: ARRHYTHMIA
     Route: 065

REACTIONS (5)
  - BLOOD SODIUM DECREASED [None]
  - MALAISE [None]
  - CONFUSIONAL STATE [None]
  - ABASIA [None]
  - DYSPHAGIA [None]
